FAERS Safety Report 5310120-5 (Version None)
Quarter: 2007Q2

REPORT INFORMATION
  Report Type: 
  Country: None (occurrence: None)
  Receive Date: 20070427
  Receipt Date: 20070423
  Transmission Date: 20071010
  Serious: Yes (Death, Hospitalization)
  Sender: FDA-Public Use
  Company Number: ES-MERCK-0704ESP00032

PATIENT
  Age: 77 Year
  Sex: Female

DRUGS (13)
  1. FOSAMAX [Suspect]
     Route: 065
     Dates: start: 20060101
  2. CEFUROXIME AXETIL [Suspect]
     Route: 065
     Dates: start: 20070101
  3. OMEPRAZOLE [Suspect]
     Route: 065
     Dates: start: 20070101
  4. FUROSEMIDE [Suspect]
     Route: 065
     Dates: start: 20060101
  5. NONSTEROIDAL ANTI-INFLAMMATORY DRUG (UNSPECIFIED) [Suspect]
     Route: 065
     Dates: start: 20060101
  6. PIROXICAM [Suspect]
     Route: 065
     Dates: start: 20060101
  7. VERAPAMIL HYDROCHLORIDE [Suspect]
     Route: 065
     Dates: start: 20060101
  8. ASPIRIN [Suspect]
     Route: 065
     Dates: start: 20060101
  9. FLUPENTIXOL HYDROCHLORIDE AND MELITRACEN HYDROCHLORIDE [Suspect]
     Route: 065
     Dates: start: 20060101
  10. TIOTROPIUM BROMIDE [Concomitant]
     Route: 065
  11. BUDESONIDE [Concomitant]
     Route: 065
  12. IRON (UNSPECIFIED) [Concomitant]
     Route: 048
  13. ACETYLCYSTEINE [Concomitant]
     Route: 065

REACTIONS (2)
  - DEATH [None]
  - TOXIC EPIDERMAL NECROLYSIS [None]
